FAERS Safety Report 6617551-1 (Version None)
Quarter: 2010Q1

REPORT INFORMATION
  Report Type: 
  Country: None (occurrence: None)
  Receive Date: 20100308
  Receipt Date: 20100223
  Transmission Date: 20100710
  Serious: Yes (Hospitalization)
  Sender: FDA-Public Use
  Company Number: IT-NOVOPROD-302555

PATIENT
  Age: 72 Year
  Sex: Male

DRUGS (7)
  1. NOVOSEVEN [Suspect]
     Indication: POST PROCEDURAL HAEMORRHAGE
     Dosage: 70 UG/KG SINGLE DOSE
  2. TRANEXAMIC ACID [Concomitant]
     Dosage: 10 MG/KG, QD
  3. TRANEXAMIC ACID [Concomitant]
     Dosage: 1 MG/KG/HR, FOR DURATION OF PROCEDURE
  4. PROPOFOL [Concomitant]
  5. SUFENTANIL [Concomitant]
  6. ROCURONIUM BROMIDE [Concomitant]
  7. HEPARIN [Concomitant]

REACTIONS (1)
  - CEREBROVASCULAR ACCIDENT [None]
